FAERS Safety Report 5259331-8 (Version None)
Quarter: 2007Q1

REPORT INFORMATION
  Report Type: 
  Country: None (occurrence: None)
  Receive Date: 20070305
  Receipt Date: 20070301
  Transmission Date: 20070707
  Serious: Yes (Hospitalization)
  Sender: FDA-Public Use
  Company Number: TCI2007A01072

PATIENT
  Age: 70 Year
  Sex: Male

DRUGS (6)
  1. LANSOPRAZOLE [Suspect]
     Indication: GASTRIC ULCER
     Dosage: TAPERING OFF FROM 30 MG/DAY TO 15 MG/DAY PER ORAL
     Route: 048
     Dates: start: 20061115, end: 20070215
  2. LANSOPRAZOLE [Suspect]
     Indication: REFLUX OESOPHAGITIS
     Dosage: TAPERING OFF FROM 30 MG/DAY TO 15 MG/DAY PER ORAL
     Route: 048
     Dates: start: 20061115, end: 20070215
  3. ITOROL (TABLETS) [Concomitant]
  4. ARTIST (CARVEDILOL ) (TABLETS) [Concomitant]
  5. MUCOSTA (REBAMIPIDE) (PREPARATION FOR ORAL USE (NOS)) [Concomitant]
  6. PURSENNID (SENNA ALEXANDRINA LEAF) (TABLETS) [Concomitant]

REACTIONS (4)
  - DEPRESSED LEVEL OF CONSCIOUSNESS [None]
  - HEPATIC ENCEPHALOPATHY [None]
  - HYPERAMMONAEMIA [None]
  - RENAL FAILURE [None]
